FAERS Safety Report 10007930 (Version 1)
Quarter: 2014Q1

REPORT INFORMATION
  Report Type: Spontaneous
  Country: US (occurrence: None)
  Receive Date: 20140228
  Receipt Date: 20140228
  Transmission Date: 20141002
  Serious: Yes (Other)
  Sender: FDA-Public Use
  Company Number: 224223

PATIENT
  Age: 63 Year
  Sex: Female

DRUGS (2)
  1. PICATO (INGENOL MEBUTATE) (0.015 %, GEL) [Suspect]
     Indication: ACTINIC KERATOSIS
     Dosage: (1 IN 1 D), TOPICAL
     Route: 061
     Dates: start: 20130930, end: 20131002
  2. TETANUS (TETANUS VACCINE) [Concomitant]

REACTIONS (5)
  - Application site rash [None]
  - Application site pain [None]
  - Application site erythema [None]
  - Application site scab [None]
  - Drug administered at inappropriate site [None]
